FAERS Safety Report 9134942 (Version 1)
Quarter: 2013Q1

REPORT INFORMATION
  Report Type: Spontaneous
  Country: US (occurrence: US)
  Receive Date: 20130304
  Receipt Date: 20130304
  Transmission Date: 20140127
  Serious: Yes (Other)
  Sender: FDA-Public Use
  Company Number: US-EISAI INC-E3810-06178-SPO-US

PATIENT
  Age: 88 None
  Sex: Male
  Weight: 83 kg

DRUGS (2)
  1. ACIPHEX (RABEPRAZOLE) [Suspect]
     Indication: DYSPEPSIA
     Route: 048
     Dates: start: 1999
  2. XARELTO [Suspect]
     Indication: ATRIAL FIBRILLATION
     Route: 048
     Dates: start: 201201

REACTIONS (7)
  - Atrial fibrillation [Not Recovered/Not Resolved]
  - Amnesia [Not Recovered/Not Resolved]
  - Glaucoma [Not Recovered/Not Resolved]
  - Nightmare [Recovered/Resolved]
  - Intestinal obstruction [Not Recovered/Not Resolved]
  - Rosacea [Unknown]
  - Heart rate decreased [Unknown]
